FAERS Safety Report 19115844 (Version 1)
Quarter: 2021Q2

REPORT INFORMATION
  Report Type: Spontaneous
  Country: BR (occurrence: BR)
  Receive Date: 20210409
  Receipt Date: 20210409
  Transmission Date: 20210717
  Serious: Yes (Other)
  Sender: FDA-Public Use
  Company Number: BR-SUN PHARMACEUTICAL INDUSTRIES LTD-2021R1-289532

PATIENT
  Age: 47 Year
  Sex: Female

DRUGS (4)
  1. MYCOPHENOLATE MOFETIL. [Suspect]
     Active Substance: MYCOPHENOLATE MOFETIL
     Indication: LESION EXCISION
     Dosage: 1G
     Route: 048
  2. METHYLPREDNISOLONE. [Suspect]
     Active Substance: METHYLPREDNISOLONE
     Indication: LESION EXCISION
     Dosage: 1G 3 DAYS
     Route: 042
  3. PREDNISONE. [Suspect]
     Active Substance: PREDNISONE
     Indication: RESPIRATORY DISORDER
     Dosage: 0.5MG/KG/D
  4. BETAMETHASONE. [Suspect]
     Active Substance: BETAMETHASONE
     Indication: LESION EXCISION
     Dosage: UNK
     Route: 065

REACTIONS (2)
  - Mucosal disorder [Unknown]
  - Drug ineffective [Unknown]
